FAERS Safety Report 16083716 (Version 1)
Quarter: 2019Q2

REPORT INFORMATION
  Report Type: Spontaneous
  Country: US (occurrence: US)
  Receive Date: 20190315
  Receipt Date: 20190315
  Transmission Date: 20190711
  Serious: Yes (Other)
  Sender: FDA-Public Use
  Company Number: None

PATIENT
  Age: 73 Year
  Sex: Male

DRUGS (4)
  1. TELMISARTAN. [Suspect]
     Active Substance: TELMISARTAN
     Indication: HYPERTENSION
     Route: 048
     Dates: start: 20181130, end: 20190315
  2. CARVEDILOL 6.25 MG [Concomitant]
     Active Substance: CARVEDILOL
     Dates: start: 20180101, end: 20190315
  3. CLONIDINE 0.1MG [Concomitant]
     Active Substance: CLONIDINE
     Dates: start: 20180101, end: 20190315
  4. DOXAZOSIN 1MG [Concomitant]
     Dates: start: 20180101, end: 20190315

REACTIONS (3)
  - Drug ineffective [None]
  - Blood pressure inadequately controlled [None]
  - Product substitution issue [None]

NARRATIVE: CASE EVENT DATE: 20190315
